FAERS Safety Report 11066513 (Version 2)
Quarter: 2015Q2

REPORT INFORMATION
  Report Type: Spontaneous
  Country: US (occurrence: US)
  Receive Date: 20150425
  Receipt Date: 20150525
  Transmission Date: 20150821
  Serious: No
  Sender: FDA-Public Use
  Company Number: US-JNJFOC-20150313968

PATIENT
  Age: 59 Year
  Sex: Male
  Weight: 56.25 kg

DRUGS (8)
  1. REMICADE [Suspect]
     Active Substance: INFLIXIMAB
     Indication: CROHN^S DISEASE
     Route: 042
     Dates: start: 2006
  2. PENTASA [Concomitant]
     Active Substance: MESALAMINE
     Dosage: 8 TABLETS
     Route: 065
  3. 6-MP [Concomitant]
     Active Substance: MERCAPTOPURINE
     Route: 065
  4. PREDNISONE. [Concomitant]
     Active Substance: PREDNISONE
     Route: 065
  5. VITAMIN D3 [Concomitant]
     Active Substance: CHOLECALCIFEROL
     Route: 065
  6. IRON [Concomitant]
     Active Substance: IRON
     Route: 065
  7. REMICADE [Suspect]
     Active Substance: INFLIXIMAB
     Indication: CROHN^S DISEASE
     Route: 042
     Dates: start: 20150213, end: 201503
  8. REMICADE [Suspect]
     Active Substance: INFLIXIMAB
     Indication: CROHN^S DISEASE
     Dosage: ABOUT ONE AND A HALF TO 2 YEARS PRIOR TO THE REPORT.
     Route: 042

REACTIONS (4)
  - Drug level decreased [Unknown]
  - Abnormal loss of weight [Not Recovered/Not Resolved]
  - Crohn^s disease [Not Recovered/Not Resolved]
  - Drug specific antibody present [Unknown]

NARRATIVE: CASE EVENT DATE: 2014
